FAERS Safety Report 6896427-9 (Version None)
Quarter: 2010Q3

REPORT INFORMATION
  Report Type: 
  Country: None (occurrence: None)
  Receive Date: 20100802
  Receipt Date: 20090213
  Transmission Date: 20110219
  Serious: No
  Sender: FDA-Public Use
  Company Number: US-PFIZER INC-2009158324

PATIENT
  Sex: Female
  Weight: 89.4 kg

DRUGS (2)
  1. NORVASC [Suspect]
     Indication: HYPERTENSION
     Dosage: 5 MG, 1X/DAY
     Route: 048
     Dates: start: 20081113
  2. SPIRIVA [Concomitant]
     Dosage: UNK
     Route: 039

REACTIONS (2)
  - DIZZINESS [None]
  - OROPHARYNGEAL PAIN [None]
